FAERS Safety Report 6917907-3 (Version None)
Quarter: 2010Q3

REPORT INFORMATION
  Report Type: 
  Country: None (occurrence: None)
  Receive Date: 20100810
  Receipt Date: 20100805
  Transmission Date: 20110219
  Serious: Yes (Hospitalization)
  Sender: FDA-Public Use
  Company Number: GB-AMGEN-KDC429399

PATIENT
  Sex: Male

DRUGS (6)
  1. VECTIBIX [Suspect]
     Indication: GASTROOESOPHAGEAL CANCER
     Dates: start: 20070629
  2. EPIRUBICIN [Suspect]
     Dates: start: 20070629
  3. OXALIPLATIN [Suspect]
     Dates: start: 20070629
  4. CAPECITABINE [Suspect]
     Dates: start: 20070629
  5. LOPERAMIDE [Concomitant]
     Dates: start: 20100624
  6. BISOPROLOL [Concomitant]

REACTIONS (2)
  - ANAEMIA [None]
  - NEUTROPENIC SEPSIS [None]
